FAERS Safety Report 17078275 (Version 2)
Quarter: 2019Q4

REPORT INFORMATION
  Report Type: Report from Study
  Country: US (occurrence: US)
  Receive Date: 20191126
  Receipt Date: 20191210
  Transmission Date: 20200122
  Serious: Yes (Hospitalization)
  Sender: FDA-Public Use
  Company Number: US-TAKEDA-2019TUS067491

PATIENT
  Age: 63 Year
  Sex: Male
  Weight: 76.2 kg

DRUGS (13)
  1. ACYCLOVIR                          /00587301/ [Concomitant]
     Active Substance: ACYCLOVIR
  2. CLOBETASOL [Concomitant]
     Active Substance: CLOBETASOL
  3. OXYCODONE [Concomitant]
     Active Substance: OXYCODONE
  4. LISINOPRIL. [Concomitant]
     Active Substance: LISINOPRIL
  5. PROCHLORPERAZINE. [Concomitant]
     Active Substance: PROCHLORPERAZINE
  6. IBRUTINIB [Suspect]
     Active Substance: IBRUTINIB
     Indication: MANTLE CELL LYMPHOMA
     Dosage: 560 MILLIGRAM
     Route: 065
     Dates: start: 20191104, end: 20191124
  7. MICONAZOLE. [Concomitant]
     Active Substance: MICONAZOLE
  8. RIVAROXABAN [Concomitant]
     Active Substance: RIVAROXABAN
  9. IXAZOMIB [Suspect]
     Active Substance: IXAZOMIB
     Indication: MANTLE CELL LYMPHOMA
     Dosage: 4 MILLIGRAM
     Route: 065
     Dates: start: 20191104
  10. LORATADINE. [Concomitant]
     Active Substance: LORATADINE
  11. AUGMENTIN [Concomitant]
     Active Substance: AMOXICILLIN\CLAVULANATE POTASSIUM
  12. ATORVASTATIN [Concomitant]
     Active Substance: ATORVASTATIN
  13. CARVEDILOL. [Concomitant]
     Active Substance: CARVEDILOL

REACTIONS (1)
  - Pneumonia fungal [Recovered/Resolved]

NARRATIVE: CASE EVENT DATE: 20191120
